FAERS Safety Report 16628946 (Version 2)
Quarter: 2019Q3

REPORT INFORMATION
  Report Type: Report from Study
  Country: RO (occurrence: RO)
  Receive Date: 20190725
  Receipt Date: 20190828
  Transmission Date: 20191004
  Serious: Yes (Life-Threatening, Hospitalization, Disabling, Other)
  Sender: FDA-Public Use
  Company Number: RO-EXELIXIS-XL18419022744

PATIENT
  Age: 70 Year
  Sex: Female
  Weight: 82 kg

DRUGS (15)
  1. BLINDED XL184 [Suspect]
     Active Substance: CABOZANTINIB
     Indication: MEDULLARY THYROID CANCER
     Dosage: 140 OR 60 MG
     Route: 048
     Dates: start: 20190329
  2. BLINDED XL184 [Suspect]
     Active Substance: CABOZANTINIB
     Dosage: 60 OR 20 MG
     Dates: start: 20190819
  3. PRESTARIUM [Concomitant]
     Active Substance: PERINDOPRIL
  4. SORTIS [Concomitant]
     Active Substance: ATORVASTATIN
  5. CLOBETASOL [Concomitant]
     Active Substance: CLOBETASOL
  6. EUTHYROX [Concomitant]
     Active Substance: LEVOTHYROXINE SODIUM
  7. BLINDED XL184 [Suspect]
     Active Substance: CABOZANTINIB
     Indication: MEDULLARY THYROID CANCER
     Dosage: 140 OR 60 MG
     Route: 048
     Dates: start: 20190329
  8. BLINDED XL184 [Suspect]
     Active Substance: CABOZANTINIB
     Dosage: 100 OR 40 MG
     Route: 048
     Dates: end: 20190718
  9. METOPROLOL. [Concomitant]
     Active Substance: METOPROLOL
  10. VITAMAX [Concomitant]
  11. THIOSSEN [Concomitant]
     Active Substance: .ALPHA.-LIPOIC ACID
  12. BLINDED XL184 [Suspect]
     Active Substance: CABOZANTINIB
     Dosage: 100 OR 40 MG
     Route: 048
     Dates: end: 20190718
  13. VITAMINS WITH MINERALS [Concomitant]
     Active Substance: MINERALS\VITAMINS
  14. TRACTOPON [Concomitant]
  15. BLINDED XL184 [Suspect]
     Active Substance: CABOZANTINIB
     Dosage: 60 OR 20 MG
     Dates: start: 20190819

REACTIONS (3)
  - Acute kidney injury [Recovered/Resolved]
  - Dehydration [Recovered/Resolved]
  - Hyperuricaemia [Recovering/Resolving]

NARRATIVE: CASE EVENT DATE: 20190719
